FAERS Safety Report 18201348 (Version 1)
Quarter: 2020Q3

REPORT INFORMATION
  Report Type: Spontaneous
  Country: SI (occurrence: SI)
  Receive Date: 20200827
  Receipt Date: 20200827
  Transmission Date: 20201103
  Serious: Yes (Other)
  Sender: FDA-Public Use
  Company Number: SI-LUPIN PHARMACEUTICALS INC.-2020-05151

PATIENT
  Age: 28 Year
  Sex: Male

DRUGS (2)
  1. BENRALIZUMAB. [Concomitant]
     Active Substance: BENRALIZUMAB
     Indication: ASTHMA
     Dosage: 30 MILLIGRAM, UNK
     Route: 065
     Dates: start: 201910
  2. METHYLPREDNISOLONE. [Suspect]
     Active Substance: METHYLPREDNISOLONE
     Indication: ASTHMA
     Dosage: 8 MILLIGRAM, QD
     Route: 065
     Dates: start: 201907

REACTIONS (1)
  - Symptom masked [Unknown]
